FAERS Safety Report 14323822 (Version 1)
Quarter: 2017Q4

REPORT INFORMATION
  Report Type: Spontaneous
  Country: US (occurrence: US)
  Receive Date: 20171222
  Receipt Date: 20171222
  Transmission Date: 20180321
  Serious: Yes (Hospitalization)
  Sender: FDA-Public Use
  Company Number: None

PATIENT
  Age: 46 Year
  Sex: Male
  Weight: 78.1 kg

DRUGS (3)
  1. 5-FLUOROURACIL (5-FU) [Suspect]
     Active Substance: FLUOROURACIL
     Dates: end: 20171220
  2. ELOXATIN [Suspect]
     Active Substance: OXALIPLATIN
     Dates: end: 20171218
  3. LEUCOVORIN CALCIUM. [Suspect]
     Active Substance: LEUCOVORIN CALCIUM
     Dates: end: 20171218

REACTIONS (5)
  - Loss of consciousness [None]
  - Nausea [None]
  - Presyncope [None]
  - Vomiting [None]
  - Syncope [None]

NARRATIVE: CASE EVENT DATE: 20171218
